FAERS Safety Report 7820977-1 (Version None)
Quarter: 2011Q4

REPORT INFORMATION
  Report Type: 
  Country: None (occurrence: None)
  Receive Date: 20111018
  Receipt Date: 20111003
  Transmission Date: 20120403
  Serious: Yes (Hospitalization, Other)
  Sender: FDA-Public Use
  Company Number: US-BAYER-2011-025751

PATIENT
  Age: 22 Year
  Sex: Female
  Weight: 79 kg

DRUGS (10)
  1. ACETAMINOPHEN AND HYDROCODONE BITARTRATE [Concomitant]
     Dosage: 15 ML, EVERY 8 HOURS
     Route: 048
     Dates: start: 20100801
  2. MULTI-VITAMIN [Concomitant]
     Dosage: 1 DF, QD
     Route: 048
  3. YASMIN [Suspect]
     Indication: CONTRACEPTION
     Dosage: UNK
     Dates: start: 20080101, end: 20100101
  4. SYNTHROID [Concomitant]
     Dosage: UNK
     Dates: start: 20030101
  5. PREDNISONE [Concomitant]
     Dosage: 5 MG, UNK
     Dates: start: 20100731, end: 20100801
  6. ANTIBIOTICS [Concomitant]
     Dosage: UNK
     Dates: start: 20100801
  7. PREDNISONE [Concomitant]
     Dosage: UNK
     Dates: start: 20100801
  8. LEVOTHYROXINE SODIUM [Concomitant]
     Dosage: 115 ?G/D, UNK
     Route: 048
  9. LORTAB [Concomitant]
     Dosage: 15 ML, UNK
     Route: 048
     Dates: start: 20100731, end: 20100801
  10. ORTHO TRI-CYCLEN [Concomitant]
     Dosage: 1 DF, QD
     Route: 048

REACTIONS (7)
  - CEREBRAL THROMBOSIS [None]
  - INJURY [None]
  - DEEP VEIN THROMBOSIS [None]
  - INTRACRANIAL VENOUS SINUS THROMBOSIS [None]
  - PAIN [None]
  - BRAIN INJURY [None]
  - SUBARACHNOID HAEMORRHAGE [None]
